FAERS Safety Report 8921922 (Version 1)
Quarter: 2012Q4

REPORT INFORMATION
  Report Type: Spontaneous
  Country: US (occurrence: None)
  Receive Date: 20121119
  Receipt Date: 20121119
  Transmission Date: 20130627
  Serious: Yes (Other)
  Sender: FDA-Public Use
  Company Number: None

PATIENT
  Age: 32 Year
  Sex: Male
  Weight: 94.35 kg

DRUGS (1)
  1. CLOZAPINE [Suspect]

REACTIONS (5)
  - Treatment failure [None]
  - Suicide attempt [None]
  - Treatment noncompliance [None]
  - Therapeutic product ineffective [None]
  - Drug administration error [None]
